FAERS Safety Report 24795347 (Version 1)
Quarter: 2024Q4

REPORT INFORMATION
  Report Type: Spontaneous
  Country: HU (occurrence: HU)
  Receive Date: 20241231
  Receipt Date: 20241231
  Transmission Date: 20250115
  Serious: Yes (Other)
  Sender: TAKEDA
  Company Number: HU-BEH-2024188664

PATIENT

DRUGS (1)
  1. HUMAN IMMUNOGLOBULIN G [Suspect]
     Active Substance: HUMAN IMMUNOGLOBULIN G
     Indication: Atrioventricular block complete
     Dosage: UNK
     Route: 064

REACTIONS (2)
  - Atrioventricular block complete [Unknown]
  - Off label use [Unknown]
